FAERS Safety Report 4310776-X (Version None)
Quarter: 2004Q1

REPORT INFORMATION
  Report Type: 
  Country: None (occurrence: None)
  Receive Date: 20040301
  Receipt Date: 20040112
  Transmission Date: 20041129
  Serious: No
  Sender: FDA-Public Use
  Company Number: WAES 0401USA00985

PATIENT
  Age: 55 Year

DRUGS (4)
  1. ZETIA [Suspect]
     Indication: HYPERLIPIDAEMIA
     Dosage: 10 MG/DAILY/PO
     Dates: start: 20031001, end: 20030101
  2. ATIVAN [Concomitant]
  3. PRILOSEC [Concomitant]
  4. VERELAN [Concomitant]

REACTIONS (2)
  - LUPUS-LIKE SYNDROME [None]
  - MYALGIA [None]
